FAERS Safety Report 18742034 (Version 1)
Quarter: 2021Q1

REPORT INFORMATION
  Report Type: Other
  Country: BE (occurrence: BE)
  Receive Date: 20210114
  Receipt Date: 20210114
  Transmission Date: 20210419
  Serious: Yes (Other)
  Sender: FDA-Public Use
  Company Number: BE-NEOPHARMA INC-000387

PATIENT

DRUGS (6)
  1. IRINOTECAN HYDROCHLORIDE. [Suspect]
     Active Substance: IRINOTECAN HYDROCHLORIDE
     Indication: COLORECTAL CANCER METASTATIC
     Dosage: 100 MG
  2. PIRITRAMIDE [Suspect]
     Active Substance: PIRITRAMIDE
     Indication: POSTOPERATIVE CARE
     Dosage: 0.05?0.1 MG/KG
     Route: 042
  3. ATROPINE. [Concomitant]
     Active Substance: ATROPINE
     Indication: PREOPERATIVE CARE
     Route: 040
  4. DEXAMETHASONE. [Concomitant]
     Active Substance: DEXAMETHASONE
     Indication: PREOPERATIVE CARE
     Dosage: 4?8 MG IV OR EQUIVALENT
     Route: 042
  5. LIDOCAINE. [Concomitant]
     Active Substance: LIDOCAINE
     Indication: PRODUCT USED FOR UNKNOWN INDICATION
     Dosage: 1% 2.5?5 MG
     Route: 042
  6. SODIUM CHLORIDE. [Concomitant]
     Active Substance: SODIUM CHLORIDE
     Indication: PREOPERATIVE CARE
     Dosage: 2 L OF 0.9% SODIUM CHLORIDE IV OVER 24 H
     Route: 042

REACTIONS (1)
  - Respiratory failure [Recovered/Resolved]
